FAERS Safety Report 21089701 (Version 1)
Quarter: 2022Q3

REPORT INFORMATION
  Report Type: Spontaneous
  Country: CN (occurrence: CN)
  Receive Date: 20220715
  Receipt Date: 20220715
  Transmission Date: 20221026
  Serious: Yes (Other)
  Sender: FDA-Public Use
  Company Number: None

PATIENT
  Age: 68 Year
  Sex: Female
  Weight: 50 kg

DRUGS (2)
  1. MANNITOL [Suspect]
     Active Substance: MANNITOL
     Indication: Pain
     Dosage: 250 ML, QD, 50G IVGTT
     Route: 041
     Dates: start: 20220629, end: 20220629
  2. LORNOXICAM [Suspect]
     Active Substance: LORNOXICAM
     Indication: Pain
     Dosage: 16 MG, QD, POWDER INJECTION
     Route: 041
     Dates: start: 20220629, end: 20220629

REACTIONS (1)
  - Tremor [Recovered/Resolved]

NARRATIVE: CASE EVENT DATE: 20220629
